FAERS Safety Report 11115862 (Version 1)
Quarter: 2015Q2

REPORT INFORMATION
  Report Type: Spontaneous
  Country: US (occurrence: None)
  Receive Date: 20150514
  Receipt Date: 20150514
  Transmission Date: 20150821
  Serious: Yes (Death)
  Sender: FDA-Public Use
  Company Number: None

PATIENT
  Age: 76 Year
  Sex: Male

DRUGS (1)
  1. OCTREOTIDE 1000MCG/ML ~5 ML MDV [Suspect]
     Active Substance: OCTREOTIDE
     Indication: CARCINOID SYNDROME
     Route: 058
     Dates: start: 20140626

REACTIONS (1)
  - Death [None]

NARRATIVE: CASE EVENT DATE: 20150512
